FAERS Safety Report 4392580-X (Version None)
Quarter: 2004Q3

REPORT INFORMATION
  Report Type: 
  Country: None (occurrence: None)
  Receive Date: 20040701
  Receipt Date: 20040618
  Transmission Date: 20050211
  Serious: Yes (Hospitalization)
  Sender: FDA-Public Use
  Company Number: HQWYE525618JUN04

PATIENT
  Age: 70 Year
  Sex: Male

DRUGS (10)
  1. CORDARONE [Suspect]
     Indication: ARRHYTHMIA PROPHYLAXIS
     Dosage: 300 MG 1X PER 1 DAY ORAL
     Route: 048
     Dates: start: 20020601, end: 20040507
  2. ALLOPURINOL [Concomitant]
  3. SELOKEN ZOC (METOPROLOL SUCCINATE) [Concomitant]
  4. ALBYL (ACETYLSALICYLIC ACID) [Concomitant]
  5. LEVAXIN (LEVOTHYROXINE SODIUM) [Concomitant]
  6. LISINOPRIL [Concomitant]
  7. DIURAL (FUROSEMIDE) [Concomitant]
  8. ZOCOR [Concomitant]
  9. GLUCOPHAGE [Concomitant]
  10. POTASSIUM CHLORIDE [Concomitant]

REACTIONS (10)
  - ATRIOVENTRICULAR BLOCK FIRST DEGREE [None]
  - BACTERIAL SEPSIS [None]
  - BLOOD CREATINE INCREASED [None]
  - BLOOD PRESSURE DECREASED [None]
  - BUNDLE BRANCH BLOCK LEFT [None]
  - CARDIOMEGALY [None]
  - COMPUTERISED TOMOGRAM ABDOMEN ABNORMAL [None]
  - EJECTION FRACTION DECREASED [None]
  - INTERSTITIAL LUNG DISEASE [None]
  - PLEURAL EFFUSION [None]
